FAERS Safety Report 10682269 (Version 4)
Quarter: 2015Q2

REPORT INFORMATION
  Report Type: Spontaneous
  Country: US (occurrence: US)
  Receive Date: 20141230
  Receipt Date: 20150525
  Transmission Date: 20150821
  Serious: No
  Sender: FDA-Public Use
  Company Number: US-JNJFOC-20140925603

PATIENT
  Sex: Male
  Weight: 78.47 kg

DRUGS (8)
  1. REMICADE [Suspect]
     Active Substance: INFLIXIMAB
     Indication: COLITIS ULCERATIVE
     Route: 042
     Dates: end: 201409
  2. IMODIUM [Concomitant]
     Active Substance: LOPERAMIDE HYDROCHLORIDE
     Route: 065
  3. APRISO [Concomitant]
     Active Substance: MESALAMINE
     Indication: COLITIS ULCERATIVE
     Route: 065
     Dates: start: 201306
  4. BENADRYL [Concomitant]
     Active Substance: DIPHENHYDRAMINE HYDROCHLORIDE
     Indication: PREMEDICATION
     Route: 048
  5. PROBIOTIC [Concomitant]
     Active Substance: PROBIOTICS NOS
     Route: 065
  6. IMURAN [Concomitant]
     Active Substance: AZATHIOPRINE
     Dosage: 30 DAYS, 6 REFILLS
     Route: 065
  7. REMICADE [Suspect]
     Active Substance: INFLIXIMAB
     Indication: COLITIS ULCERATIVE
     Route: 042
     Dates: start: 201405
  8. MULTIVITAMINS [Concomitant]
     Active Substance: VITAMINS
     Route: 065

REACTIONS (19)
  - Diarrhoea [Unknown]
  - Neuropathy peripheral [Unknown]
  - Infusion related reaction [Recovered/Resolved]
  - Feeling abnormal [Unknown]
  - Anxiety [Unknown]
  - Rectal haemorrhage [Unknown]
  - Dyspepsia [Unknown]
  - Hyperhidrosis [Recovered/Resolved]
  - Drug hypersensitivity [Unknown]
  - Prostatic specific antigen abnormal [Unknown]
  - Chills [Recovered/Resolved]
  - Tremor [Recovered/Resolved]
  - Faecal incontinence [Unknown]
  - Eructation [Unknown]
  - Dyspnoea [Recovered/Resolved]
  - Palpitations [Recovered/Resolved]
  - Polyarthritis [Unknown]
  - Rash erythematous [Recovered/Resolved]
  - Tachycardia [Recovered/Resolved]
